FAERS Safety Report 10437873 (Version 1)
Quarter: 2014Q3

REPORT INFORMATION
  Report Type: Spontaneous
  Country: US (occurrence: US)
  Receive Date: 20140908
  Receipt Date: 20140908
  Transmission Date: 20150326
  Serious: No
  Sender: FDA-Public Use
  Company Number: US-BRISTOL-MYERS SQUIBB COMPANY-21027586

PATIENT
  Age: 46 Year
  Sex: Female

DRUGS (2)
  1. NEXIUM [Concomitant]
     Active Substance: ESOMEPRAZOLE MAGNESIUM
  2. ABILIFY [Suspect]
     Active Substance: ARIPIPRAZOLE
     Dosage: DURATION:2-3 YEARS
     Dates: start: 2011

REACTIONS (1)
  - Orthostatic hypotension [Recovering/Resolving]
